FAERS Safety Report 19083140 (Version 1)
Quarter: 2021Q2

REPORT INFORMATION
  Report Type: Spontaneous
  Country: CN (occurrence: CN)
  Receive Date: 20210401
  Receipt Date: 20210401
  Transmission Date: 20210717
  Serious: Yes (Life-Threatening, Hospitalization)
  Sender: FDA-Public Use
  Company Number: CN-PFIZER INC-2435951

PATIENT
  Age: 56 Year
  Sex: Female

DRUGS (5)
  1. 5?FU /00098801/ [Suspect]
     Active Substance: FLUOROURACIL
     Indication: RECTAL CANCER METASTATIC
     Dosage: 0.6 UOM NOT REPORTED ON D1, REPEATED EVERY 2 WK
     Route: 040
  2. 5?FU /00098801/ [Suspect]
     Active Substance: FLUOROURACIL
     Dosage: 3.6 UOM NOT REPORTED, 46 H REPEATED EVERY 2 WEEKS
     Route: 041
  3. BEVACIZUMAB. [Suspect]
     Active Substance: BEVACIZUMAB
     Indication: RECTAL CANCER METASTATIC
     Dosage: 300 MG, CYCLIC (ON D1)
     Route: 041
  4. IRINOTECAN HCL [Suspect]
     Active Substance: IRINOTECAN HYDROCHLORIDE
     Indication: RECTAL CANCER METASTATIC
     Dosage: 270 MG, CYCLIC (ON D1)
     Route: 041
  5. CALCIUM FOLINATE [Suspect]
     Active Substance: LEUCOVORIN CALCIUM
     Indication: RECTAL CANCER METASTATIC
     Dosage: 0.3 UOM NOT REPORTED, ON D1 REPEATED EVERY 2 WEEKS
     Route: 041

REACTIONS (1)
  - Posterior reversible encephalopathy syndrome [Recovered/Resolved]

NARRATIVE: CASE EVENT DATE: 20110411
